FAERS Safety Report 24425361 (Version 1)
Quarter: 2024Q4

REPORT INFORMATION
  Report Type: Spontaneous
  Country: JP (occurrence: JP)
  Receive Date: 20241011
  Receipt Date: 20241011
  Transmission Date: 20250115
  Serious: Yes (Other)
  Sender: UCB
  Company Number: JP-UCBJ-CD202409412UCBPHAPROD

PATIENT
  Age: 13 Year
  Sex: Male

DRUGS (1)
  1. LEVETIRACETAM [Suspect]
     Active Substance: LEVETIRACETAM
     Indication: Partial seizures with secondary generalisation
     Dosage: UNK
     Route: 048

REACTIONS (5)
  - Focal dyscognitive seizures [Recovered/Resolved]
  - Hippocampal sclerosis [Unknown]
  - Glioneuronal tumour [Recovered/Resolved]
  - Nausea [Unknown]
  - Tumour excision [Unknown]
